FAERS Safety Report 6409218-X (Version None)
Quarter: 2009Q4

REPORT INFORMATION
  Report Type: 
  Country: None (occurrence: None)
  Receive Date: 20091021
  Receipt Date: 20091014
  Transmission Date: 20100525
  Serious: Yes (Hospitalization)
  Sender: FDA-Public Use
  Company Number: FR-AVENTIS-200921583GDDC

PATIENT
  Age: 39 Year
  Sex: Male

DRUGS (1)
  1. MINIRIN [Suspect]
     Route: 042
     Dates: start: 20090409, end: 20090409

REACTIONS (6)
  - CHEST DISCOMFORT [None]
  - COLD SWEAT [None]
  - DRY THROAT [None]
  - NAUSEA [None]
  - PALPITATIONS [None]
  - TREMOR [None]
